FAERS Safety Report 10518838 (Version 1)
Quarter: 2014Q4

REPORT INFORMATION
  Report Type: Spontaneous
  Country: US (occurrence: None)
  Receive Date: 20141014
  Receipt Date: 20141014
  Transmission Date: 20150528
  Serious: No
  Sender: FDA-Public Use
  Company Number: None

PATIENT
  Age: 59 Year
  Sex: Male

DRUGS (1)
  1. HUMIRA [Suspect]
     Active Substance: ADALIMUMAB
     Indication: COLITIS ULCERATIVE
     Dosage: 40MG, QM DAYS, SQ
     Route: 058
     Dates: start: 20140924

REACTIONS (2)
  - Colitis ulcerative [None]
  - Condition aggravated [None]

NARRATIVE: CASE EVENT DATE: 20140924
